FAERS Safety Report 12559073 (Version 1)
Quarter: 2016Q3

REPORT INFORMATION
  Report Type: Spontaneous
  Country: US (occurrence: US)
  Receive Date: 20160715
  Receipt Date: 20160715
  Transmission Date: 20161109
  Serious: Yes (Hospitalization)
  Sender: FDA-Public Use
  Company Number: US-BAUSCH-BL-2016-016706

PATIENT
  Age: 68 Year
  Sex: Female
  Weight: 136.2 kg

DRUGS (12)
  1. IMDUR [Concomitant]
     Active Substance: ISOSORBIDE MONONITRATE
     Indication: ANGINA PECTORIS
     Route: 048
  2. LASIX [Concomitant]
     Active Substance: FUROSEMIDE
     Indication: FLUID IMBALANCE
     Route: 048
  3. KEPPRA [Concomitant]
     Active Substance: LEVETIRACETAM
     Indication: SEIZURE
     Route: 048
  4. LOSARTAN. [Concomitant]
     Active Substance: LOSARTAN
     Indication: BLOOD PRESSURE ABNORMAL
     Route: 048
  5. XIFAXAN [Suspect]
     Active Substance: RIFAXIMIN
     Indication: LIVER DISORDER
     Route: 048
  6. SOTALOL. [Concomitant]
     Active Substance: SOTALOL
     Indication: BLOOD PRESSURE ABNORMAL
     Route: 048
  7. MORPHINE CR [Concomitant]
     Indication: PAIN
     Route: 048
  8. PROTONIX [Concomitant]
     Active Substance: PANTOPRAZOLE SODIUM
     Indication: GASTROOESOPHAGEAL REFLUX DISEASE
     Route: 048
  9. LACTULOSE. [Concomitant]
     Active Substance: LACTULOSE
     Indication: LIVER DISORDER
     Route: 048
  10. ZOFRAN [Concomitant]
     Active Substance: ONDANSETRON HYDROCHLORIDE
     Indication: NAUSEA
     Dosage: AS NEEDED
     Route: 048
  11. CYMBALTA [Concomitant]
     Active Substance: DULOXETINE HYDROCHLORIDE
     Indication: DEPRESSION
     Route: 048
  12. SERAX [Concomitant]
     Active Substance: OXAZEPAM
     Indication: ANXIETY
     Dosage: TWICE DAILY AS NEEDED
     Route: 048

REACTIONS (2)
  - Urinary tract infection [Recovered/Resolved]
  - Ammonia increased [Recovered/Resolved]

NARRATIVE: CASE EVENT DATE: 20160705
